FAERS Safety Report 5864272-9 (Version None)
Quarter: 2008Q3

REPORT INFORMATION
  Report Type: 
  Country: None (occurrence: None)
  Receive Date: 20080829
  Receipt Date: 20080819
  Transmission Date: 20090109
  Serious: Yes (Other)
  Sender: FDA-Public Use
  Company Number: BE-AMGEN-UK290060

PATIENT
  Age: 30 Year
  Sex: Male

DRUGS (8)
  1. NEULASTA [Suspect]
     Indication: CHEMOTHERAPY
     Route: 058
     Dates: start: 20080108
  2. LEVOFLOXACIN [Concomitant]
     Route: 048
  3. FLUCONAZOLE [Concomitant]
  4. ALLOPURINOL [Concomitant]
  5. CYCLOPHOSPHAMIDE [Concomitant]
  6. VINCRISTINE [Concomitant]
  7. ADRIAMYCIN PFS [Concomitant]
  8. DEXAMETHASONE TAB [Concomitant]

REACTIONS (2)
  - BONE MARROW NECROSIS [None]
  - BONE PAIN [None]
